FAERS Safety Report 21365834 (Version 1)
Quarter: 2022Q3

REPORT INFORMATION
  Report Type: Report from Study
  Country: US (occurrence: US)
  Receive Date: 20220922
  Receipt Date: 20220922
  Transmission Date: 20221026
  Serious: Yes (Other)
  Sender: FDA-Public Use
  Company Number: US-ABBVIE-4128201

PATIENT
  Age: 73 Year
  Sex: Male

DRUGS (4)
  1. HUMIRA [Suspect]
     Active Substance: ADALIMUMAB
     Indication: Ankylosing spondylitis
     Dosage: CITRATE FREE
     Route: 058
  2. Pfizer/BioNTech Covid vaccine [Concomitant]
     Indication: COVID-19 immunisation
     Dosage: FIRST DOSE, FREQUENCY ONCE
     Route: 030
     Dates: start: 20210201, end: 20210201
  3. Pfizer/BioNTech Covid vaccine [Concomitant]
     Indication: COVID-19 immunisation
     Dosage: SECOND DOSE, FREQUENCY ONCE
     Route: 030
     Dates: start: 20210224, end: 20210224
  4. Pfizer/BioNTech Covid vaccine [Concomitant]
     Indication: COVID-19 immunisation
     Dosage: BOOSTER DOSE, FREQUENCY ONCE
     Dates: start: 20210828, end: 20210828

REACTIONS (1)
  - Spinal fusion surgery [Recovering/Resolving]

NARRATIVE: CASE EVENT DATE: 20220511
